FAERS Safety Report 9157136 (Version 2)
Quarter: 2013Q2

REPORT INFORMATION
  Report Type: Spontaneous
  Country: US (occurrence: US)
  Receive Date: 20130312
  Receipt Date: 20130402
  Transmission Date: 20140414
  Serious: No
  Sender: FDA-Public Use
  Company Number: US-PFIZER INC-2013080903

PATIENT
  Age: 32 Year
  Sex: Male

DRUGS (5)
  1. ZOLOFT [Suspect]
     Dosage: UNK
  2. EFFEXOR [Suspect]
     Dosage: UNK
  3. PAXIL [Suspect]
     Dosage: UNK
  4. PROZAC [Suspect]
     Dosage: UNK
  5. TOPAMAX [Suspect]
     Dosage: UNK

REACTIONS (1)
  - Drug hypersensitivity [Unknown]
